FAERS Safety Report 24644037 (Version 2)
Quarter: 2024Q4

REPORT INFORMATION
  Report Type: Report from Study
  Country: NL (occurrence: NL)
  Receive Date: 20241120
  Receipt Date: 20241122
  Transmission Date: 20250114
  Serious: Yes (Death, Hospitalization)
  Sender: REGENERON
  Company Number: NL-SA-SAC20240612000871

PATIENT
  Age: 81 Year
  Sex: Male

DRUGS (4)
  1. CEMIPLIMAB [Suspect]
     Active Substance: CEMIPLIMAB
     Indication: Non-small cell lung cancer
     Dosage: 350 MG, Q3W
     Route: 042
     Dates: start: 20240603
  2. IPILIMUMAB [Suspect]
     Active Substance: IPILIMUMAB
     Indication: Non-small cell lung cancer
     Dosage: 68 MG, 1X
     Dates: start: 20240513, end: 20240513
  3. SPIRONOLACTONE [Concomitant]
     Active Substance: SPIRONOLACTONE
     Indication: Product used for unknown indication
     Dosage: 12.5 MG
     Dates: start: 20240408, end: 20240610
  4. FUROSEMIDE [Concomitant]
     Active Substance: FUROSEMIDE
     Indication: Product used for unknown indication
     Dosage: 20 MG
     Dates: start: 20240603, end: 20240610

REACTIONS (1)
  - Immune-mediated nephritis [Fatal]

NARRATIVE: CASE EVENT DATE: 20240610
